FAERS Safety Report 6085515-5 (Version None)
Quarter: 2009Q1

REPORT INFORMATION
  Report Type: 
  Country: None (occurrence: None)
  Receive Date: 20090220
  Receipt Date: 20090210
  Transmission Date: 20090719
  Serious: Yes (Hospitalization)
  Sender: FDA-Public Use
  Company Number: US-BAXTER-2009BH002449

PATIENT
  Age: 38 Year
  Sex: Female

DRUGS (3)
  1. DIANEAL [Suspect]
     Indication: PERITONEAL DIALYSIS
     Route: 033
     Dates: start: 20060801
  2. DIANEAL [Suspect]
     Indication: PERITONEAL DIALYSIS
     Route: 033
     Dates: start: 20060801
  3. ANTIBIOTICS [Suspect]
     Indication: URINARY TRACT INFECTION
     Route: 065
     Dates: start: 20090101

REACTIONS (3)
  - DEHYDRATION [None]
  - HYPOTENSION [None]
  - URINARY TRACT INFECTION [None]
